FAERS Safety Report 12313718 (Version 1)
Quarter: 2016Q2

REPORT INFORMATION
  Report Type: Spontaneous
  Country: CA (occurrence: CA)
  Receive Date: 20160428
  Receipt Date: 20160428
  Transmission Date: 20160815
  Serious: Yes (Hospitalization, Other)
  Sender: FDA-Public Use
  Company Number: CA-SA-2015SA016447

PATIENT
  Age: 71 Year
  Sex: Female

DRUGS (2)
  1. LANTUS [Suspect]
     Active Substance: INSULIN GLARGINE
     Indication: TYPE 2 DIABETES MELLITUS
     Route: 065
     Dates: end: 201506
  2. LANTUS [Suspect]
     Active Substance: INSULIN GLARGINE
     Indication: TYPE 2 DIABETES MELLITUS
     Route: 058
     Dates: start: 2011, end: 201502

REACTIONS (11)
  - Back pain [Unknown]
  - Drug hypersensitivity [Recovering/Resolving]
  - Musculoskeletal pain [Recovering/Resolving]
  - Product use issue [Unknown]
  - Breast pain [Recovering/Resolving]
  - Apparent death [Unknown]
  - Head lag [Recovering/Resolving]
  - Rash [Recovered/Resolved]
  - Blood glucose increased [Not Recovered/Not Resolved]
  - Pain [Recovered/Resolved]
  - Drug ineffective [Unknown]

NARRATIVE: CASE EVENT DATE: 2011
